FAERS Safety Report 6141459-1 (Version None)
Quarter: 2009Q2

REPORT INFORMATION
  Report Type: 
  Country: None (occurrence: None)
  Receive Date: 20090402
  Receipt Date: 20090330
  Transmission Date: 20091009
  Serious: Yes (Other)
  Sender: FDA-Public Use
  Company Number: US-ROXANE LABORATORIES, INC.-2009-RO-00309RO

PATIENT
  Age: 67 Year
  Sex: Female

DRUGS (5)
  1. MORPHINE [Suspect]
     Indication: PAIN
     Dosage: 120MG
  2. TRICYCLIC ANTIDEPRESSANTS [Suspect]
  3. BENZODIAZEPINES [Suspect]
  4. MODAFINIL [Suspect]
  5. OXYGEN [Concomitant]
     Indication: HYPOXIA

REACTIONS (1)
  - SLEEP APNOEA SYNDROME [None]
